FAERS Safety Report 19225057 (Version 1)
Quarter: 2021Q2

REPORT INFORMATION
  Report Type: Spontaneous
  Country: US (occurrence: US)
  Receive Date: 20210505
  Receipt Date: 20210505
  Transmission Date: 20210717
  Serious: No
  Sender: FDA-Public Use
  Company Number: US-ROCHE-2694324

PATIENT
  Sex: Female

DRUGS (3)
  1. ESBRIET [Suspect]
     Active Substance: PIRFENIDONE
     Indication: IDIOPATHIC PULMONARY FIBROSIS
     Dosage: ONE PILL THREE TIMES A DAY
     Route: 048
     Dates: start: 20201005
  2. ESBRIET [Suspect]
     Active Substance: PIRFENIDONE
     Dosage: TITRATION DOSE: TAKE ONE TABLET BY MOUTH 3 TIMES A DAY FOR 7 DAYS, TAKE TWO TABLET BY MOUTH 3 TIMES
     Route: 048
     Dates: start: 20200922
  3. ESBRIET [Suspect]
     Active Substance: PIRFENIDONE
     Dosage: 267 MG THREE PILLS THREE TIMES A DAY
     Route: 048
     Dates: start: 20200921

REACTIONS (9)
  - Hypoacusis [Unknown]
  - Nausea [Unknown]
  - Nausea [Not Recovered/Not Resolved]
  - Illness [Unknown]
  - Abdominal discomfort [Unknown]
  - Abdominal pain upper [Not Recovered/Not Resolved]
  - Decreased appetite [Unknown]
  - Decreased appetite [Not Recovered/Not Resolved]
  - Diarrhoea [Unknown]
